FAERS Safety Report 16135365 (Version 1)
Quarter: 2019Q1

REPORT INFORMATION
  Report Type: Spontaneous
  Country: US (occurrence: US)
  Receive Date: 20190331
  Receipt Date: 20190331
  Transmission Date: 20190418
  Serious: No
  Sender: FDA-Public Use
  Company Number: US-TEVA-2019-US-1024181

PATIENT
  Age: 49 Year
  Sex: Male

DRUGS (1)
  1. SILDENAFIL TEVA [Suspect]
     Active Substance: SILDENAFIL
     Indication: ERECTILE DYSFUNCTION
     Dosage: 100MG BY MOUTH HALF TO 1 TAB 30-60 MINUTES PRIOR TO INTERCOURSE
     Route: 048

REACTIONS (3)
  - Abdominal pain upper [Recovered/Resolved]
  - Dyspepsia [Recovered/Resolved]
  - Headache [Recovered/Resolved]

NARRATIVE: CASE EVENT DATE: 201808
